FAERS Safety Report 19733013 (Version 1)
Quarter: 2021Q3

REPORT INFORMATION
  Report Type: Spontaneous
  Country: US (occurrence: US)
  Receive Date: 20210823
  Receipt Date: 20210823
  Transmission Date: 20211014
  Serious: Yes (Hospitalization, Other)
  Sender: FDA-Public Use
  Company Number: US-CIPLA LTD.-2021US05772

PATIENT

DRUGS (15)
  1. CYCLOPHOSPHAMIDE. [Suspect]
     Active Substance: CYCLOPHOSPHAMIDE
     Indication: ADULT T-CELL LYMPHOMA/LEUKAEMIA
     Dosage: 750 MILLIGRAM/SQ. METER, 1 CYCLICAL
     Route: 065
  2. DOXORUBICIN [Suspect]
     Active Substance: DOXORUBICIN
     Indication: ADULT T-CELL LYMPHOMA/LEUKAEMIA
     Dosage: UNK
     Route: 065
  3. RIFAXIMIN. [Concomitant]
     Active Substance: RIFAXIMIN
     Indication: ASTERIXIS
  4. LACTULOSE. [Concomitant]
     Active Substance: LACTULOSE
     Indication: HEPATIC ENCEPHALOPATHY
  5. ZIDOVUDINE. [Concomitant]
     Active Substance: ZIDOVUDINE
     Indication: HUMAN T-CELL LYMPHOTROPIC VIRUS TYPE I INFECTION
     Dosage: 250 MILLIGRAM, BID
     Route: 065
  6. URSODIOL. [Concomitant]
     Active Substance: URSODIOL
     Indication: HYPERBILIRUBINAEMIA
     Dosage: 300 MILLIGRAM, QD
     Route: 048
  7. LACTULOSE. [Concomitant]
     Active Substance: LACTULOSE
     Indication: ASTERIXIS
     Dosage: 20 GRAM, TID (EVERY 8 HR)
     Route: 048
  8. FINASTERIDE. [Concomitant]
     Active Substance: FINASTERIDE
     Indication: BENIGN PROSTATIC HYPERPLASIA
     Dosage: 5 MILLIGRAM, QD
     Route: 065
  9. LEVOTHYROXINE. [Concomitant]
     Active Substance: LEVOTHYROXINE
     Indication: HYPOTHYROIDISM
     Dosage: 75 MICROGRAM, QD
     Route: 065
  10. VINCRISTINE [Suspect]
     Active Substance: VINCRISTINE
     Indication: ADULT T-CELL LYMPHOMA/LEUKAEMIA
     Dosage: 1 MILLIGRAM, 1 CYCLICAL (DOSE REDUCED)
     Route: 065
  11. DOXAZOSIN [Concomitant]
     Active Substance: DOXAZOSIN MESYLATE
     Indication: BENIGN PROSTATIC HYPERPLASIA
     Dosage: 4 MILLIGRAM, QD
     Route: 065
  12. PREDNISONE. [Suspect]
     Active Substance: PREDNISONE
     Indication: ADULT T-CELL LYMPHOMA/LEUKAEMIA
     Dosage: 500 MILLIGRAM, 1 CYCLICAL (21?DAY CYCLE PREDNISONE 100MG (FOR 5DAYS)
     Route: 065
  13. PRAVASTATIN. [Concomitant]
     Active Substance: PRAVASTATIN
     Indication: HYPERCHOLESTEROLAEMIA
     Dosage: 40 MILLIGRAM, QD
     Route: 065
  14. ASPARTAME;CHOLESTYRAMINE [Concomitant]
     Indication: HYPERBILIRUBINAEMIA
     Dosage: 4 GRAM, QD
     Route: 048
  15. RIFAXIMIN. [Concomitant]
     Active Substance: RIFAXIMIN
     Indication: HEPATIC ENCEPHALOPATHY
     Dosage: 550 MILLIGRAM, BID (12 HR)
     Route: 048

REACTIONS (3)
  - Pancytopenia [Recovering/Resolving]
  - Myelosuppression [Recovering/Resolving]
  - Anaemia [Recovering/Resolving]
